FAERS Safety Report 20846178 (Version 3)
Quarter: 2022Q4

REPORT INFORMATION
  Report Type: Spontaneous
  Country: US (occurrence: US)
  Receive Date: 20220518
  Receipt Date: 20221213
  Transmission Date: 20230112
  Serious: No
  Sender: FDA-Public Use
  Company Number: US-PFIZER INC-202200321366

PATIENT
  Age: 35 Year
  Sex: Female

DRUGS (12)
  1. XANAX [Interacting]
     Active Substance: ALPRAZOLAM
     Indication: Anxiety
     Dosage: 0.5 MG, 2X/DAY (BID PM)
     Route: 048
  2. VERAPAMIL HCL [Interacting]
     Active Substance: VERAPAMIL HYDROCHLORIDE
     Dosage: 80 MG, DAILY
  3. TRAMADOL HYDROCHLORIDE [Suspect]
     Active Substance: TRAMADOL HYDROCHLORIDE
     Indication: Pain
     Dosage: 50 MG, 2X/DAY (BID PM)
  4. LEVEMIR [Interacting]
     Active Substance: INSULIN DETEMIR
     Dosage: 100 IU/ML
  5. ZULRESSO [Interacting]
     Active Substance: BREXANOLONE
     Indication: Perinatal depression
     Dosage: UNK
     Route: 042
     Dates: start: 20211115, end: 20211118
  6. HUMALOG [Interacting]
     Active Substance: INSULIN LISPRO
     Dosage: 100 IU/ML
  7. HUMALOG [Interacting]
     Active Substance: INSULIN LISPRO
     Dosage: UNK (HAD TO TRIPLE HER INSULIN DAILY INTAKE)
  8. OREGANO LEAF OIL [Concomitant]
     Active Substance: OREGANO LEAF OIL
     Dosage: UNK
  9. ZINC [Concomitant]
     Active Substance: ZINC
     Dosage: UNK
  10. VITAMIN D3 [Concomitant]
     Active Substance: CHOLECALCIFEROL
     Dosage: UNK
  11. B12 [CYANOCOBALAMIN-TANNIN COMPLEX] [Concomitant]
     Dosage: UNK
  12. VITAMIN C [Concomitant]
     Active Substance: ASCORBIC ACID

REACTIONS (3)
  - Drug interaction [Unknown]
  - Fatigue [Recovering/Resolving]
  - Somnolence [Unknown]

NARRATIVE: CASE EVENT DATE: 20211101
